FAERS Safety Report 8624577-5 (Version None)
Quarter: 2012Q3

REPORT INFORMATION
  Report Type: 
  Country: None (occurrence: None)
  Receive Date: 20120827
  Receipt Date: 20120820
  Transmission Date: 20120928
  Serious: Yes (Hospitalization)
  Sender: FDA-Public Use
  Company Number: JP-GILEAD-2012-0060165

PATIENT
  Sex: Male

DRUGS (8)
  1. BISOPROLOL FUMARATE [Concomitant]
     Dosage: UNK
     Dates: start: 20110401
  2. VASOLAN                            /00014302/ [Concomitant]
     Dosage: UNK
     Dates: start: 20110901, end: 20120328
  3. EFAVIRENZ [Suspect]
     Indication: HIV INFECTION
     Dosage: 600 MG, QD
     Route: 048
     Dates: start: 20040423
  4. CANDESARTAN CILEXETIL [Concomitant]
     Dosage: UNK
     Dates: start: 20110519
  5. TENORMIN [Concomitant]
     Dosage: UNK
     Dates: start: 20120328
  6. EBASTINE [Concomitant]
     Indication: PRODUCT USED FOR UNKNOWN INDICATION
     Dosage: UNK
     Dates: start: 20110401
  7. ATELEC [Concomitant]
     Dosage: UNK
     Dates: start: 20110519
  8. EMTRICITABINE/TENOFOVIR DISOPROXIL FUMARATE [Suspect]
     Indication: HIV INFECTION
     Dosage: 1 DF, QD
     Route: 048
     Dates: start: 20090128

REACTIONS (2)
  - CHEST DISCOMFORT [None]
  - SUPRAVENTRICULAR TACHYCARDIA [None]
